FAERS Safety Report 9687848 (Version 1)
Quarter: 2013Q4

REPORT INFORMATION
  Report Type: Spontaneous
  Country: GB (occurrence: None)
  Receive Date: 20131112
  Receipt Date: 20131112
  Transmission Date: 20140711
  Serious: Yes (Disabling, Other)
  Sender: FDA-Public Use
  Company Number: AUR-APL-2013-09316

PATIENT
  Age: 76 Year
  Sex: Male
  Weight: 68.4 kg

DRUGS (7)
  1. TAMSULOSIN [Suspect]
     Indication: DYSURIA
     Route: 048
     Dates: start: 20130123, end: 20130901
  2. BENDROFLUMETHIAZIDE [Concomitant]
  3. CLENIL MODULITE (BECLOMETASONE DIPROPIONATE) [Concomitant]
  4. FENOFIBRATE [Concomitant]
  5. IMIDAPRIL [Concomitant]
  6. OMEPRAZOLE [Concomitant]
  7. SALBUTAMOL [Concomitant]

REACTIONS (4)
  - Oedema peripheral [None]
  - Dizziness [None]
  - Dystonia [None]
  - Asthenia [None]
